FAERS Safety Report 13135195 (Version 2)
Quarter: 2017Q1

REPORT INFORMATION
  Report Type: Report from Study
  Country: DE (occurrence: DE)
  Receive Date: 20170120
  Receipt Date: 20170227
  Transmission Date: 20170428
  Serious: Yes (Hospitalization)
  Sender: FDA-Public Use
  Company Number: DE-TAKEDA-2017TUS001199

PATIENT
  Age: 51 Year
  Sex: Male
  Weight: 74 kg

DRUGS (2)
  1. VEDOLIZUMAB [Suspect]
     Active Substance: VEDOLIZUMAB
     Indication: COLITIS ULCERATIVE
     Dosage: 300 MG, UNK
     Route: 042
  2. MUTAFLOR [Concomitant]
     Active Substance: ESCHERICHIA COLI
     Indication: COLITIS ULCERATIVE
     Dosage: UNK, QD
     Dates: start: 2014

REACTIONS (5)
  - Rectal neoplasm [Recovering/Resolving]
  - Drug effect incomplete [Unknown]
  - Colitis ulcerative [Not Recovered/Not Resolved]
  - Pseudopolyp [Unknown]
  - Product use issue [Unknown]

NARRATIVE: CASE EVENT DATE: 20161025
